FAERS Safety Report 25041661 (Version 1)
Quarter: 2025Q1

REPORT INFORMATION
  Report Type: Other
  Country: TR (occurrence: TR)
  Receive Date: 20250305
  Receipt Date: 20250305
  Transmission Date: 20250409
  Serious: Yes (Life-Threatening, Hospitalization, Other)
  Sender: LYNE LABORATORIES
  Company Number: TR-Lyne Laboratories Inc.-2172264

PATIENT
  Age: 21 Year
  Sex: Male

DRUGS (8)
  1. DEXAMETHASONE [Suspect]
     Active Substance: DEXAMETHASONE
     Indication: Precursor T-lymphoblastic lymphoma/leukaemia
  2. DARATUMUMAB [Suspect]
     Active Substance: DARATUMUMAB
  3. MICAFUNGIN [Concomitant]
     Active Substance: MICAFUNGIN SODIUM
  4. ETOPOSIDE [Concomitant]
     Active Substance: ETOPOSIDE
  5. FLUDARABINE [Concomitant]
     Active Substance: FLUDARABINE PHOSPHATE
  6. NELARABINE [Concomitant]
     Active Substance: NELARABINE
  7. AZACITIDINE [Suspect]
     Active Substance: AZACITIDINE
  8. VENETOCLAX [Suspect]
     Active Substance: VENETOCLAX

REACTIONS (4)
  - Neutropenia [Unknown]
  - Haemophilus infection [Unknown]
  - Bacterial sepsis [Unknown]
  - Bronchopulmonary aspergillosis [Unknown]
